FAERS Safety Report 9479141 (Version 2)
Quarter: 2013Q3

REPORT INFORMATION
  Report Type: Report from Study
  Country: MY (occurrence: MY)
  Receive Date: 20130827
  Receipt Date: 20130827
  Transmission Date: 20140515
  Serious: Yes (Hospitalization, Other)
  Sender: FDA-Public Use
  Company Number: MY-BRISTOL-MYERS SQUIBB COMPANY-14879381

PATIENT
  Age: 34 Year
  Sex: Female

DRUGS (3)
  1. WARFARIN SODIUM [Suspect]
     Indication: EMBOLISM
     Route: 048
     Dates: start: 20091008, end: 20091026
  2. ENOXAPARIN [Suspect]
     Indication: EMBOLISM
     Dosage: NO OF COURSE:1
     Route: 058
     Dates: start: 20091008, end: 20091012
  3. PLACEBO [Suspect]
     Indication: EMBOLISM
     Dates: start: 20091008, end: 200910

REACTIONS (1)
  - Deep vein thrombosis [Unknown]
